FAERS Safety Report 8608514-5 (Version None)
Quarter: 2012Q3

REPORT INFORMATION
  Report Type: 
  Country: None (occurrence: None)
  Receive Date: 20120821
  Receipt Date: 20120817
  Transmission Date: 20120928
  Serious: No
  Sender: FDA-Public Use
  Company Number: US-PFIZER INC-2012202501

PATIENT
  Age: 70 Year
  Sex: Female
  Weight: 89.252 kg

DRUGS (8)
  1. ASPIRIN [Concomitant]
     Dosage: 81 MG, UNK
  2. PRINIVIL [Concomitant]
     Dosage: 40 MG, UNK
  3. ZOCOR [Concomitant]
     Dosage: UNK
  4. CHANTIX [Suspect]
     Indication: SMOKING CESSATION THERAPY
     Dosage: 0.5 MG, 1X/DAY
     Route: 048
     Dates: start: 20120801, end: 20120816
  5. ATENOLOL [Concomitant]
     Dosage: 100/25 MG, UNK
  6. ADVIL [Concomitant]
     Dosage: UNK
  7. ULTRAM [Concomitant]
     Indication: PAIN
     Dosage: UNK, AS NEEDED
  8. PLAVIX [Concomitant]
     Dosage: 75 MG, UNK

REACTIONS (1)
  - PSYCHOTIC DISORDER [None]
